FAERS Safety Report 4800784-4 (Version None)
Quarter: 2005Q4

REPORT INFORMATION
  Report Type: 
  Country: None (occurrence: None)
  Receive Date: 20051013
  Receipt Date: 20051003
  Transmission Date: 20060501
  Serious: Yes (Hospitalization)
  Sender: FDA-Public Use
  Company Number: 2005-10-0139

PATIENT
  Age: 57 Year
  Sex: Female
  Weight: 90 kg

DRUGS (3)
  1. TEMOXOL                 (TEMOZOLOMIDE) [Suspect]
     Indication: GLIOBLASTOMA
     Dosage: 130 MG QD ORAL
     Route: 048
     Dates: start: 20050824
  2. DECADRON [Concomitant]
  3. PHENYTOIN [Concomitant]

REACTIONS (1)
  - DEEP VEIN THROMBOSIS [None]
